FAERS Safety Report 14537441 (Version 4)
Quarter: 2021Q2

REPORT INFORMATION
  Report Type: Spontaneous
  Country: PL (occurrence: PL)
  Receive Date: 20180215
  Receipt Date: 20210603
  Transmission Date: 20210716
  Serious: Yes (Hospitalization)
  Sender: FDA-Public Use
  Company Number: PL-BAUSCH-BL-2018-003431

PATIENT
  Age: 12 Year
  Sex: Female
  Weight: 32 kg

DRUGS (19)
  1. CORNEREGEL 50 MG/G, ZEL DO OCZU [Suspect]
     Active Substance: DEXPANTHENOL
     Indication: ULCER
  2. OPATANOL [Suspect]
     Active Substance: OLOPATADINE
     Indication: KERATITIS
     Route: 061
     Dates: start: 2013
  3. CEFUROXIME. [Suspect]
     Active Substance: CEFUROXIME
     Indication: KERATITIS
     Route: 042
  4. TOBREX [Suspect]
     Active Substance: TOBRAMYCIN
     Indication: KERATITIS
     Route: 061
     Dates: start: 2013
  5. INDOCOLLYRE 0,1%, 1 MG/ML, KROPLE DO OCZU, ROZTWOR [Suspect]
     Active Substance: INDOMETHACIN
     Indication: KERATITIS
     Route: 061
  6. DIFADOL [Suspect]
     Active Substance: DICLOFENAC SODIUM
     Indication: ULCER
  7. LOTEMAX [Suspect]
     Active Substance: LOTEPREDNOL ETABONATE
     Indication: KERATITIS
     Route: 061
     Dates: start: 2013
  8. CORNEREGEL 50 MG/G, ZEL DO OCZU [Suspect]
     Active Substance: DEXPANTHENOL
     Indication: KERATITIS
     Route: 061
     Dates: start: 2013
  9. OPATANOL [Suspect]
     Active Substance: OLOPATADINE
     Indication: ULCER
  10. TREHALOSE [Suspect]
     Active Substance: TREHALOSE
     Indication: KERATITIS
     Route: 061
  11. TREHALOSE [Suspect]
     Active Substance: TREHALOSE
     Indication: ULCER
  12. DIFADOL [Suspect]
     Active Substance: DICLOFENAC SODIUM
     Indication: KERATITIS
     Route: 065
  13. OFTAQUIX [Suspect]
     Active Substance: LEVOFLOXACIN
     Indication: KERATITIS
     Route: 061
     Dates: start: 2013
  14. TOBREX [Suspect]
     Active Substance: TOBRAMYCIN
     Indication: ULCER
  15. LOTEMAX [Suspect]
     Active Substance: LOTEPREDNOL ETABONATE
     Indication: ULCER
  16. DEXAVEN [Suspect]
     Active Substance: DEXAMETHASONE
     Indication: ULCER
  17. DEXAVEN [Suspect]
     Active Substance: DEXAMETHASONE
     Indication: KERATITIS
     Route: 065
     Dates: start: 2013
  18. ERYTHROMYCIN. [Suspect]
     Active Substance: ERYTHROMYCIN
     Indication: KERATITIS
     Route: 061
  19. OFTAQUIX [Suspect]
     Active Substance: LEVOFLOXACIN
     Indication: ULCER

REACTIONS (2)
  - Drug ineffective [Unknown]
  - Intentional product misuse [Unknown]
